FAERS Safety Report 7654194-5 (Version None)
Quarter: 2011Q3

REPORT INFORMATION
  Report Type: 
  Country: None (occurrence: None)
  Receive Date: 20110803
  Receipt Date: 20110727
  Transmission Date: 20111222
  Serious: Yes (Other)
  Sender: FDA-Public Use
  Company Number: BR-ROCHE-792968

PATIENT
  Sex: Male
  Weight: 78 kg

DRUGS (6)
  1. TOCILIZUMAB [Suspect]
     Indication: RHEUMATOID ARTHRITIS
     Route: 065
     Dates: start: 20110501
  2. OMEPRAZOLE [Concomitant]
  3. SIMVASTATIN [Concomitant]
  4. CAPTOPRIL [Concomitant]
  5. LEVOID [Concomitant]
  6. FOLIC ACID [Concomitant]

REACTIONS (6)
  - PROSTATIC SPECIFIC ANTIGEN ABNORMAL [None]
  - HEADACHE [None]
  - HYPERTENSION [None]
  - FATIGUE [None]
  - DECREASED APPETITE [None]
  - MALAISE [None]
